FAERS Safety Report 24381591 (Version 1)
Quarter: 2024Q4

REPORT INFORMATION
  Report Type: Spontaneous
  Country: DE (occurrence: DE)
  Receive Date: 20241001
  Receipt Date: 20241001
  Transmission Date: 20250115
  Serious: Yes (Other)
  Sender: ACCORD
  Company Number: DE-Accord-448220

PATIENT
  Age: 20 Year
  Sex: Female
  Weight: 34 kg

DRUGS (5)
  1. ETOPOSIDE [Suspect]
     Active Substance: ETOPOSIDE
     Indication: Ewing^s sarcoma recurrent
     Dates: start: 20220806, end: 2022
  2. CYCLOPHOSPHAMIDE [Suspect]
     Active Substance: CYCLOPHOSPHAMIDE
     Indication: Ewing^s sarcoma recurrent
     Dates: start: 20220806, end: 2022
  3. DOXORUBICIN [Suspect]
     Active Substance: DOXORUBICIN
     Indication: Ewing^s sarcoma recurrent
     Dates: start: 20220806, end: 2022
  4. IFOSFAMIDE [Suspect]
     Active Substance: IFOSFAMIDE
     Indication: Ewing^s sarcoma recurrent
     Dates: start: 20220806, end: 2022
  5. VINCRISTINE [Suspect]
     Active Substance: VINCRISTINE
     Indication: Ewing^s sarcoma recurrent
     Dates: start: 20220806, end: 2022

REACTIONS (6)
  - Headache [Unknown]
  - Pancytopenia [Unknown]
  - Neutropenic sepsis [Unknown]
  - Epilepsy [Unknown]
  - Tumour haemorrhage [Unknown]
  - Off label use [Unknown]

NARRATIVE: CASE EVENT DATE: 20220101
